FAERS Safety Report 9669204 (Version 1)
Quarter: 2013Q4

REPORT INFORMATION
  Report Type: Spontaneous
  Country: US (occurrence: US)
  Receive Date: 20131105
  Receipt Date: 20131105
  Transmission Date: 20140711
  Serious: Yes (Other)
  Sender: FDA-Public Use
  Company Number: US-MYLANLABS-2013S1024031

PATIENT
  Age: 77 Year
  Sex: Male

DRUGS (3)
  1. FLUOROURACIL [Suspect]
     Indication: ACTINIC KERATOSIS
     Dosage: 0.5% CREAM
     Route: 061
  2. LISINOPRIL [Interacting]
     Dosage: 20 MG/D
     Route: 065
  3. METFORMIN [Concomitant]
     Dosage: 1500 MG/D
     Route: 065

REACTIONS (4)
  - Angioedema [Recovered/Resolved]
  - Presyncope [Recovered/Resolved]
  - Inappropriate schedule of drug administration [Recovered/Resolved]
  - Drug interaction [Recovered/Resolved]
